FAERS Safety Report 10995759 (Version 2)
Quarter: 2015Q3

REPORT INFORMATION
  Report Type: Report from Study
  Country: US (occurrence: US)
  Receive Date: 20150407
  Receipt Date: 20150901
  Transmission Date: 20151125
  Serious: Yes (Other)
  Sender: FDA-Public Use
  Company Number: US-ABBVIE-15P-163-1370752-00

PATIENT
  Age: 35 Year
  Sex: Female

DRUGS (5)
  1. LUPRON DEPOT [Suspect]
     Active Substance: LEUPROLIDE ACETATE
     Indication: ENDOMETRIOSIS
     Route: 065
     Dates: start: 2012
  2. LUPRON DEPOT [Suspect]
     Active Substance: LEUPROLIDE ACETATE
     Route: 065
     Dates: start: 201406, end: 201409
  3. LUPRON DEPOT [Suspect]
     Active Substance: LEUPROLIDE ACETATE
     Route: 065
     Dates: start: 20150415
  4. NORETHINDRONE ACETATE. [Suspect]
     Active Substance: NORETHINDRONE ACETATE
     Indication: ENDOMETRIOSIS
     Route: 048
     Dates: start: 20150817
  5. ZYRTEC [Concomitant]
     Active Substance: CETIRIZINE HYDROCHLORIDE
     Indication: HYPERSENSITIVITY
     Route: 048

REACTIONS (8)
  - Endometriosis [Unknown]
  - Feeling abnormal [Unknown]
  - Influenza [Not Recovered/Not Resolved]
  - Headache [Not Recovered/Not Resolved]
  - Hot flush [Unknown]
  - Drug ineffective [Not Recovered/Not Resolved]
  - Myalgia [Not Recovered/Not Resolved]
  - Oophorectomy [Recovered/Resolved]

NARRATIVE: CASE EVENT DATE: 2014
